FAERS Safety Report 5657603-6 (Version None)
Quarter: 2008Q1

REPORT INFORMATION
  Report Type: 
  Country: None (occurrence: None)
  Receive Date: 20080219
  Receipt Date: 20071127
  Transmission Date: 20080703
  Serious: No
  Sender: FDA-Public Use
  Company Number: WAES 0710USA04932

PATIENT
  Age: 52 Year
  Sex: Female
  Weight: 110.6777 kg

DRUGS (5)
  1. JANUVIA [Suspect]
     Indication: TYPE 2 DIABETES MELLITUS
     Dosage: 100 MG/DAILY/PO
     Route: 048
     Dates: start: 20071001
  2. AMBIEN [Concomitant]
  3. AMITIZA [Concomitant]
  4. CYMBALTA [Concomitant]
  5. ENJUVIA [Concomitant]

REACTIONS (2)
  - CONSTIPATION [None]
  - IRRITABLE BOWEL SYNDROME [None]
